FAERS Safety Report 22542166 (Version 1)
Quarter: 2023Q2

REPORT INFORMATION
  Report Type: Spontaneous
  Country: IT (occurrence: IT)
  Receive Date: 20230609
  Receipt Date: 20230609
  Transmission Date: 20230722
  Serious: Yes (Death, Other)
  Sender: FDA-Public Use
  Company Number: IT-GILEAD-2023-0630364

PATIENT
  Age: 30 Year
  Sex: Female

DRUGS (1)
  1. YESCARTA [Suspect]
     Active Substance: AXICABTAGENE CILOLEUCEL
     Indication: Diffuse large B-cell lymphoma
     Dosage: TOTAL DOSE: 2000000
     Route: 042
     Dates: start: 20221124, end: 20221124

REACTIONS (4)
  - Death [Fatal]
  - Cytokine release syndrome [Unknown]
  - Cytopenia [Unknown]
  - Nervous system disorder [Unknown]

NARRATIVE: CASE EVENT DATE: 20230516
